FAERS Safety Report 17874378 (Version 1)
Quarter: 2020Q2

REPORT INFORMATION
  Report Type: Spontaneous
  Country: US (occurrence: US)
  Receive Date: 20200609
  Receipt Date: 20200609
  Transmission Date: 20200714
  Serious: No
  Sender: FDA-Public Use
  Company Number: US-SUN PHARMACEUTICAL INDUSTRIES LTD-2020R1-240543

PATIENT
  Age: 7 Year
  Sex: Male

DRUGS (1)
  1. GUANFACINE. [Suspect]
     Active Substance: GUANFACINE
     Indication: IMPULSE-CONTROL DISORDER
     Dosage: 1 TABLET, DAILY
     Route: 065
     Dates: start: 20200130, end: 20200302

REACTIONS (6)
  - Aggression [Recovering/Resolving]
  - Fatigue [Recovering/Resolving]
  - Anger [Recovering/Resolving]
  - Drug ineffective [Unknown]
  - Insomnia [Not Recovered/Not Resolved]
  - Impulsive behaviour [Recovering/Resolving]

NARRATIVE: CASE EVENT DATE: 20200204
